FAERS Safety Report 24968479 (Version 1)
Quarter: 2025Q1

REPORT INFORMATION
  Report Type: Spontaneous
  Country: US (occurrence: US)
  Receive Date: 20250214
  Receipt Date: 20250214
  Transmission Date: 20250409
  Serious: Yes (Hospitalization)
  Sender: Unknown Manufacturer
  Company Number: US-MLMSERVICE-20250130-PI370598-00221-2

PATIENT
  Age: 68 Year
  Sex: Female

DRUGS (15)
  1. FLUOXETINE [Suspect]
     Active Substance: FLUOXETINE HYDROCHLORIDE
     Indication: Schizophrenia
  2. CLOZAPINE [Suspect]
     Active Substance: CLOZAPINE
     Indication: Schizophrenia
     Dosage: ON DAY 1
  3. CLOZAPINE [Suspect]
     Active Substance: CLOZAPINE
     Dosage: ON DAY 2
  4. CLOZAPINE [Suspect]
     Active Substance: CLOZAPINE
     Dosage: ON DAY 3
  5. CLOZAPINE [Suspect]
     Active Substance: CLOZAPINE
     Dosage: ON DAY 4
  6. CLOZAPINE [Suspect]
     Active Substance: CLOZAPINE
     Dosage: FROM DAY 5 TO DAY 16
  7. CLOZAPINE [Suspect]
     Active Substance: CLOZAPINE
     Dosage: FROM DAY 17, 25 MG EVERY MORNING AND 50 MG EVERY EVENING
  8. METOPROLOL SUCCINATE [Suspect]
     Active Substance: METOPROLOL SUCCINATE
     Indication: Hypertension
  9. RISPERIDONE [Suspect]
     Active Substance: RISPERIDONE
     Indication: Schizophrenia
     Dosage: DIVIDED 4?MG IN THE MORNING AND 8?MG IN THE EVENING; TILL DAY-2 OF CROSS-TITRATION
  10. RISPERIDONE [Suspect]
     Active Substance: RISPERIDONE
     Dosage: ON DAY 3 AND 4
  11. RISPERIDONE [Suspect]
     Active Substance: RISPERIDONE
     Dosage: ON DAY 5 TO DAY 9
  12. RISPERIDONE [Suspect]
     Active Substance: RISPERIDONE
     Dosage: ON DAY 10, BID
  13. RISPERIDONE [Suspect]
     Active Substance: RISPERIDONE
     Dosage: ON DAY 11
  14. RISPERIDONE [Suspect]
     Active Substance: RISPERIDONE
     Dosage: ON DAY 12
  15. TRAZODONE [Concomitant]
     Active Substance: TRAZODONE HYDROCHLORIDE
     Indication: Schizophrenia
     Dosage: NIGHTLY

REACTIONS (4)
  - Orthostatic hypotension [Unknown]
  - Antipsychotic drug level increased [Recovered/Resolved]
  - Drug interaction [Unknown]
  - Drug interaction [Unknown]
